FAERS Safety Report 5969317-3 (Version None)
Quarter: 2008Q4

REPORT INFORMATION
  Report Type: 
  Country: None (occurrence: None)
  Receive Date: 20081126
  Receipt Date: 20081119
  Transmission Date: 20090506
  Serious: Yes (Other)
  Sender: FDA-Public Use
  Company Number: US-PFIZER INC-2007091529

PATIENT
  Sex: Male
  Weight: 63.5 kg

DRUGS (9)
  1. DETROL LA [Suspect]
     Indication: HYPERTONIC BLADDER
     Dates: start: 20071029
  2. DETROL LA [Suspect]
     Route: 048
     Dates: start: 20081001, end: 20081112
  3. LOTREL [Concomitant]
  4. MICARDIS [Concomitant]
  5. ACETYLSALICYLIC ACID SRT [Concomitant]
  6. FLUOXETINE [Concomitant]
  7. AMLODIPINE [Concomitant]
  8. OXYBUTYNIN CHLORIDE [Concomitant]
  9. WELCHOL [Concomitant]

REACTIONS (8)
  - BLOOD PRESSURE INCREASED [None]
  - DIZZINESS [None]
  - DRY EYE [None]
  - DRY THROAT [None]
  - NAUSEA [None]
  - SINUS DISORDER [None]
  - SOMNOLENCE [None]
  - VISION BLURRED [None]
